FAERS Safety Report 10530675 (Version 1)
Quarter: 2014Q4

REPORT INFORMATION
  Report Type: Spontaneous
  Country: US (occurrence: None)
  Receive Date: 20141020
  Receipt Date: 20141020
  Transmission Date: 20150528
  Serious: No
  Sender: FDA-Public Use
  Company Number: None

PATIENT
  Age: 54 Year
  Sex: Female
  Weight: 86.18 kg

DRUGS (3)
  1. HYDROCO/APAP [Suspect]
     Active Substance: ACETAMINOPHEN\HYDROCODONE
     Indication: OVARIAN CANCER
     Dosage: 1 TABLET  EVERY FOUR HOURS TAKEN BY MOUTH
     Route: 048
     Dates: start: 20141017, end: 20141018
  2. HYDROCO/APAP [Suspect]
     Active Substance: ACETAMINOPHEN\HYDROCODONE
     Indication: MASTECTOMY
     Dosage: 1 TABLET  EVERY FOUR HOURS TAKEN BY MOUTH
     Route: 048
     Dates: start: 20141017, end: 20141018
  3. HYDROCO/APAP [Suspect]
     Active Substance: ACETAMINOPHEN\HYDROCODONE
     Indication: PAIN MANAGEMENT
     Dosage: 1 TABLET  EVERY FOUR HOURS TAKEN BY MOUTH
     Route: 048
     Dates: start: 20141017, end: 20141018

REACTIONS (7)
  - Agitation [None]
  - Reaction to azo-dyes [None]
  - Product quality issue [None]
  - Drug effect decreased [None]
  - Product substitution issue [None]
  - Palpitations [None]
  - Headache [None]

NARRATIVE: CASE EVENT DATE: 20141017
